FAERS Safety Report 9880234 (Version 1)
Quarter: 2014Q1

REPORT INFORMATION
  Report Type: Spontaneous
  Country: US (occurrence: US)
  Receive Date: 20140207
  Receipt Date: 20140207
  Transmission Date: 20141002
  Serious: No
  Sender: FDA-Public Use
  Company Number: US-BIOGENIDEC-2014BI009566

PATIENT
  Sex: Female

DRUGS (8)
  1. TECFIDERA [Suspect]
     Indication: MULTIPLE SCLEROSIS
     Route: 048
     Dates: start: 20130608
  2. SERTRALINE [Concomitant]
  3. FAMCICLOVIR [Concomitant]
  4. LORAZEPAM [Concomitant]
  5. LISINOPRIL [Concomitant]
  6. ERGOCALCIFER [Concomitant]
  7. NITROGLYCER [Concomitant]
  8. SIMVASTATIN [Concomitant]

REACTIONS (1)
  - Muscle contractions involuntary [Not Recovered/Not Resolved]
